FAERS Safety Report 7716758-X (Version None)
Quarter: 2011Q3

REPORT INFORMATION
  Report Type: 
  Country: None (occurrence: None)
  Receive Date: 20110829
  Receipt Date: 20110818
  Transmission Date: 20111222
  Serious: Yes (Hospitalization, Other)
  Sender: FDA-Public Use
  Company Number: US-ASTRAZENECA-2011SE42138

PATIENT
  Age: 57 Year
  Sex: Female
  Weight: 126.1 kg

DRUGS (17)
  1. ACTOS [Concomitant]
  2. MULIVITAMIN [Concomitant]
  3. PLAVIX [Concomitant]
     Dates: start: 20101201
  4. CRESTOR [Suspect]
     Route: 048
     Dates: start: 20070101
  5. VITAMIN D [Concomitant]
  6. CRESTOR [Suspect]
     Route: 048
     Dates: start: 20080506
  7. LISINOPRIL [Concomitant]
  8. ACTOS [Concomitant]
     Dates: start: 20070205
  9. ACE INHIBITOR [Concomitant]
     Indication: PROPHYLAXIS
  10. FISH OIL [Concomitant]
     Route: 048
     Dates: end: 20100101
  11. GLIPIZIDE [Concomitant]
  12. ASPIRIN [Concomitant]
  13. METFORMIN HYDROCHLORIDE [Concomitant]
     Route: 048
     Dates: end: 20100101
  14. ALLEGRA [Concomitant]
  15. FISH OIL [Concomitant]
     Dates: start: 20100101
  16. METFORMIN HYDROCHLORIDE [Concomitant]
     Route: 048
     Dates: start: 20101216
  17. SIMAVASTATIN [Concomitant]

REACTIONS (11)
  - MYALGIA [None]
  - DYSPNOEA EXERTIONAL [None]
  - SNORING [None]
  - PERIPHERAL EMBOLISM [None]
  - CORONARY ARTERY DISEASE [None]
  - SOMNOLENCE [None]
  - CAROTID ARTERY OCCLUSION [None]
  - WEIGHT INCREASED [None]
  - VISION BLURRED [None]
  - CAROTID ARTERY STENOSIS [None]
  - TRANSIENT ISCHAEMIC ATTACK [None]
